FAERS Safety Report 5685077-8 (Version None)
Quarter: 2008Q1

REPORT INFORMATION
  Report Type: 
  Country: None (occurrence: None)
  Receive Date: 20080327
  Receipt Date: 20080311
  Transmission Date: 20080703
  Serious: Yes (Death, Life-Threatening, Hospitalization, Other)
  Sender: FDA-Public Use
  Company Number: WAES 0802USA05328

PATIENT
  Age: 56 Year
  Sex: Male

DRUGS (8)
  1. PRINIVIL [Suspect]
     Dosage: 20 MG/PO
     Route: 048
  2. TOPROL-XL [Suspect]
     Dosage: PO
     Route: 048
  3. TAB SUNITINIB MALATE 37.5 MG [Suspect]
     Indication: BLADDER TRANSITIONAL CELL CARCINOMA
     Dosage: 37.5 MG/DAILY/PO
     Route: 048
     Dates: start: 20061206, end: 20071017
  4. BEVACIZUMAB 5 MG/KG [Suspect]
     Indication: BLADDER TRANSITIONAL CELL CARCINOMA
     Dosage: 5 MG/KG/IV
     Route: 042
     Dates: start: 20021206, end: 20071008
  5. NORVASC [Suspect]
  6. CELEXA [Concomitant]
  7. NASONEX [Concomitant]
  8. OXYCODONE HCL [Concomitant]

REACTIONS (25)
  - ALANINE AMINOTRANSFERASE INCREASED [None]
  - ANGIOEDEMA [None]
  - ASPARTATE AMINOTRANSFERASE INCREASED [None]
  - BLOOD BILIRUBIN INCREASED [None]
  - BLOOD CREATININE INCREASED [None]
  - DEHYDRATION [None]
  - FATIGUE [None]
  - FLANK PAIN [None]
  - GASTROINTESTINAL NECROSIS [None]
  - HEPATIC STEATOSIS [None]
  - HYPERKALAEMIA [None]
  - HYPOTENSION [None]
  - HYPOVOLAEMIA [None]
  - INFECTION [None]
  - INTESTINAL ISCHAEMIA [None]
  - INTUSSUSCEPTION [None]
  - LACTIC ACIDOSIS [None]
  - MALAISE [None]
  - METABOLIC ACIDOSIS [None]
  - MUSCULOSKELETAL PAIN [None]
  - ORAL PAIN [None]
  - PERFORMANCE STATUS DECREASED [None]
  - RENAL FAILURE ACUTE [None]
  - RESPIRATORY DISTRESS [None]
  - RESPIRATORY FAILURE [None]
